FAERS Safety Report 6515912-2 (Version None)
Quarter: 2009Q4

REPORT INFORMATION
  Report Type: 
  Country: None (occurrence: None)
  Receive Date: 20091217
  Receipt Date: 20090424
  Transmission Date: 20100525
  Serious: Yes (Hospitalization, Other)
  Sender: FDA-Public Use
  Company Number: 59614

PATIENT
  Age: 63 Year
  Sex: Male

DRUGS (1)
  1. CISPLATIN [Suspect]
     Indication: SQUAMOUS CELL CARCINOMA
     Dosage: 158MG
     Dates: start: 20081006

REACTIONS (1)
  - THROMBOCYTOPENIA [None]
